FAERS Safety Report 9848888 (Version 1)
Quarter: 2014Q1

REPORT INFORMATION
  Report Type: Spontaneous
  Country: US (occurrence: US)
  Receive Date: 20140128
  Receipt Date: 20140128
  Transmission Date: 20141002
  Serious: Yes (Other)
  Sender: FDA-Public Use
  Company Number: US-JNJFOC-20140115366

PATIENT
  Sex: 0

DRUGS (1)
  1. INFLIXIMAB, RECOMBINANT [Suspect]
     Indication: UVEITIS
     Dosage: 4- 6 MG GIVEN AS LOADING DOSES AT 0, 2 AND 6 WEEKS FOLLOWED BY MAINTAINANCE AT EVERY 4 WEEKS
     Route: 042

REACTIONS (2)
  - Lupus-like syndrome [Unknown]
  - Off label use [Unknown]
